FAERS Safety Report 6738260-4 (Version None)
Quarter: 2010Q2

REPORT INFORMATION
  Report Type: 
  Country: None (occurrence: None)
  Receive Date: 20100524
  Receipt Date: 20100517
  Transmission Date: 20101027
  Serious: Yes (Death)
  Sender: FDA-Public Use
  Company Number: A0860007A

PATIENT
  Age: 70 Year
  Sex: Female

DRUGS (9)
  1. ARIXTRA [Suspect]
     Indication: THROMBOSIS
     Dosage: 7.5MG PER DAY
     Route: 058
     Dates: start: 20090709
  2. FORADIL [Concomitant]
  3. SIMVASTATIN [Concomitant]
  4. ALBUTEROL [Concomitant]
  5. ZOFRAN [Concomitant]
  6. SENOKOT [Concomitant]
  7. PRILOSEC [Concomitant]
  8. HYDROCODONE [Concomitant]
  9. UNKNOWN MEDICATION [Concomitant]

REACTIONS (1)
  - BRAIN NEOPLASM MALIGNANT [None]
